FAERS Safety Report 9909534 (Version 2)
Quarter: 2014Q1

REPORT INFORMATION
  Report Type: Spontaneous
  Country: US (occurrence: US)
  Receive Date: 20140219
  Receipt Date: 20140219
  Transmission Date: 20141002
  Serious: No
  Sender: FDA-Public Use
  Company Number: US-GILEAD-2012-0056366

PATIENT
  Sex: Female

DRUGS (2)
  1. LETAIRIS [Suspect]
     Indication: PULMONARY ARTERIAL HYPERTENSION
     Dosage: 10 MG, UNK
     Route: 048
     Dates: start: 20120419
  2. TYVASO [Suspect]

REACTIONS (5)
  - Cough [Recovered/Resolved]
  - Chest discomfort [Unknown]
  - Oropharyngeal pain [Unknown]
  - Headache [Unknown]
  - Rash [Recovered/Resolved]
